FAERS Safety Report 22524572 (Version 4)
Quarter: 2023Q2

REPORT INFORMATION
  Report Type: Spontaneous
  Country: US (occurrence: US)
  Receive Date: 20230606
  Receipt Date: 20230629
  Transmission Date: 20230722
  Serious: No
  Sender: FDA-Public Use
  Company Number: US-PFIZER INC-202300209217

PATIENT
  Age: 13 Year
  Sex: Female
  Weight: 63.8 kg

DRUGS (1)
  1. GENOTROPIN [Suspect]
     Active Substance: SOMATROPIN
     Dosage: 1.2 MG, DAILY
     Dates: start: 20230421

REACTIONS (3)
  - Device power source issue [Unknown]
  - Device information output issue [Unknown]
  - Device failure [Unknown]
